FAERS Safety Report 19690920 (Version 2)
Quarter: 2021Q3

REPORT INFORMATION
  Report Type: Spontaneous
  Country: US (occurrence: US)
  Receive Date: 20210812
  Receipt Date: 20210817
  Transmission Date: 20211014
  Serious: No
  Sender: FDA-Public Use
  Company Number: US-PFIZER INC-2021900707

PATIENT
  Age: 80 Year
  Sex: Female

DRUGS (1)
  1. BOSULIF [Suspect]
     Active Substance: BOSUTINIB MONOHYDRATE
     Indication: ENDOMETRIAL CANCER
     Dosage: 100 MG, 3X/DAY
     Route: 048

REACTIONS (2)
  - Hypersensitivity [Unknown]
  - Off label use [Unknown]
